FAERS Safety Report 5959057-9 (Version None)
Quarter: 2008Q4

REPORT INFORMATION
  Report Type: 
  Country: None (occurrence: None)
  Receive Date: 20081120
  Receipt Date: 20081117
  Transmission Date: 20090506
  Serious: Yes (Hospitalization)
  Sender: FDA-Public Use
  Company Number: IE-WYE-G02141608

PATIENT
  Age: 20 Year
  Sex: Male
  Weight: 65.2 kg

DRUGS (2)
  1. TAZOCIN [Suspect]
     Indication: INFECTION
     Route: 042
     Dates: start: 20080829, end: 20080904
  2. FLOXACILLIN SODIUM [Concomitant]
     Indication: INFECTION
     Route: 042
     Dates: start: 20080829

REACTIONS (5)
  - ARTHRALGIA [None]
  - FEELING OF BODY TEMPERATURE CHANGE [None]
  - HEADACHE [None]
  - MYALGIA [None]
  - PRODUCT QUALITY ISSUE [None]
